FAERS Safety Report 5765607-8 (Version None)
Quarter: 2008Q2

REPORT INFORMATION
  Report Type: 
  Country: None (occurrence: None)
  Receive Date: 20080611
  Receipt Date: 20080609
  Transmission Date: 20081010
  Serious: Yes (Other)
  Sender: FDA-Public Use
  Company Number: DE-AVENTIS-200811537DE

PATIENT
  Sex: Female

DRUGS (1)
  1. CLEXANE [Suspect]
     Indication: FACTOR V DEFICIENCY
     Dosage: DOSE: NOT REPORTED

REACTIONS (2)
  - ABORTION SPONTANEOUS [None]
  - DRUG EXPOSURE DURING PREGNANCY [None]
